FAERS Safety Report 8596626-4 (Version None)
Quarter: 2012Q3

REPORT INFORMATION
  Report Type: 
  Country: None (occurrence: None)
  Receive Date: 20120815
  Receipt Date: 20120801
  Transmission Date: 20120928
  Serious: Yes (Other)
  Sender: FDA-Public Use
  Company Number: JP-UCBSA-063020

PATIENT
  Age: 72 Year
  Sex: Male

DRUGS (3)
  1. TEGRETOL [Suspect]
     Dosage: DAILY DOSE: 600 MG
     Route: 048
     Dates: end: 20120721
  2. TEGRETOL [Suspect]
     Dosage: UNKNOWN
     Route: 048
     Dates: start: 20120722, end: 20120726
  3. KEPPRA [Suspect]
     Route: 048
     Dates: start: 20120716, end: 20120726

REACTIONS (1)
  - THROMBOCYTOPENIA [None]
